FAERS Safety Report 25965241 (Version 1)
Quarter: 2025Q4

REPORT INFORMATION
  Report Type: Spontaneous
  Country: US (occurrence: US)
  Receive Date: 20251027
  Receipt Date: 20251027
  Transmission Date: 20260118
  Serious: No
  Sender: SANOFI AVENTIS
  Company Number: US-SA-2025SA317296

PATIENT
  Sex: Male

DRUGS (12)
  1. DUPIXENT [Suspect]
     Active Substance: DUPILUMAB
     Indication: Chemical poisoning
     Dosage: 300 MG, QOW
     Route: 058
     Dates: start: 20250925
  2. ARFORMOTEROL [Concomitant]
     Active Substance: ARFORMOTEROL
  3. BUDESONIDE [Concomitant]
     Active Substance: BUDESONIDE
  4. ELIGARD [Concomitant]
     Active Substance: LEUPROLIDE ACETATE
  5. IPRATROPIUM [Concomitant]
     Active Substance: IPRATROPIUM
  6. ATORVASTATIN [Concomitant]
     Active Substance: ATORVASTATIN
  7. CLOPIDOGREL [Concomitant]
     Active Substance: CLOPIDOGREL BISULFATE
  8. LISINOPRIL [Concomitant]
     Active Substance: LISINOPRIL
  9. MONTELUKAST [Concomitant]
     Active Substance: MONTELUKAST
  10. TOLTERODINE [Concomitant]
     Active Substance: TOLTERODINE
  11. TRELEGY ELLIPTA [Concomitant]
     Active Substance: FLUTICASONE FUROATE\UMECLIDINIUM BROMIDE\VILANTEROL TRIFENATATE
  12. YUPELRI [Concomitant]
     Active Substance: REVEFENACIN

REACTIONS (2)
  - Periorbital swelling [Not Recovered/Not Resolved]
  - Drug ineffective for unapproved indication [Unknown]
